FAERS Safety Report 25957008 (Version 1)
Quarter: 2025Q4

REPORT INFORMATION
  Report Type: Spontaneous
  Country: US (occurrence: None)
  Receive Date: 20251023
  Receipt Date: 20251023
  Transmission Date: 20260117
  Serious: No
  Sender: FDA-CTU
  Company Number: None

PATIENT
  Age: 67 Year
  Sex: Female
  Weight: 52.2 kg

DRUGS (8)
  1. VEOZAH [Suspect]
     Active Substance: FEZOLINETANT
     Dates: start: 20241101, end: 20250915
  2. ANASTROZOLE [Concomitant]
     Active Substance: ANASTROZOLE
  3. LIPITOR [Concomitant]
     Active Substance: ATORVASTATIN CALCIUM
  4. METFORMIN [Concomitant]
     Active Substance: METFORMIN HYDROCHLORIDE
  5. OLMESARTAN [Concomitant]
     Active Substance: OLMESARTAN
  6. TYLENOL [Concomitant]
     Active Substance: ACETAMINOPHEN
  7. FISH OIL [Concomitant]
     Active Substance: FISH OIL
  8. multi vitamin for women [Concomitant]

REACTIONS (2)
  - Arthralgia [None]
  - Therapy cessation [None]

NARRATIVE: CASE EVENT DATE: 20250701
